FAERS Safety Report 9783127 (Version 2)
Quarter: 2014Q1

REPORT INFORMATION
  Report Type: Spontaneous
  Country: FR (occurrence: FR)
  Receive Date: 20131226
  Receipt Date: 20140313
  Transmission Date: 20141002
  Serious: Yes (Hospitalization)
  Sender: FDA-Public Use
  Company Number: FR-ABBVIE-13P-056-1182732-00

PATIENT
  Age: 62 Year
  Sex: Male

DRUGS (9)
  1. DEPAKOTE [Suspect]
     Indication: BIPOLAR DISORDER
     Route: 048
     Dates: start: 2011, end: 20131212
  2. XEROQUEL [Suspect]
     Indication: DEPRESSION
     Route: 048
     Dates: start: 201309, end: 20131207
  3. ANTIHYPERTENSIVES [Concomitant]
     Indication: HYPERTENSION
  4. ANTIDIABETIC DRUG NOS [Concomitant]
     Indication: DIABETES MELLITUS
  5. CLOPIDOGREL [Concomitant]
     Indication: PRODUCT USED FOR UNKNOWN INDICATION
  6. EUCREAS [Concomitant]
     Indication: DIABETES MELLITUS
  7. LOSARTAN [Concomitant]
     Indication: HYPERTENSION
  8. ATORVASTATIN [Concomitant]
     Indication: PROPHYLAXIS
     Dates: start: 2008
  9. CLOPIDOGREL BISULFATE [Concomitant]
     Indication: STENT PLACEMENT

REACTIONS (3)
  - Lethargy [Recovered/Resolved]
  - Asthenia [Recovered/Resolved]
  - Somnolence [Recovered/Resolved]
